FAERS Safety Report 24916400 (Version 1)
Quarter: 2025Q1

REPORT INFORMATION
  Report Type: Spontaneous
  Country: US (occurrence: None)
  Receive Date: 20250131
  Receipt Date: 20250131
  Transmission Date: 20250408
  Serious: Yes (Hospitalization)
  Sender: FDA-CTU
  Company Number: None

PATIENT
  Age: 63 Year
  Sex: Female

DRUGS (2)
  1. PHENOBARBITAL [Suspect]
     Active Substance: PHENOBARBITAL
  2. XCOPRI [Suspect]
     Active Substance: CENOBAMATE
     Indication: Seizure
     Dosage: 200 MG DAILY ORAL ?
     Route: 048
     Dates: start: 20210322

REACTIONS (1)
  - Accidental overdose [None]
